FAERS Safety Report 8439784-4 (Version None)
Quarter: 2012Q2

REPORT INFORMATION
  Report Type: 
  Country: None (occurrence: None)
  Receive Date: 20120615
  Receipt Date: 20120608
  Transmission Date: 20120825
  Serious: Yes (Hospitalization)
  Sender: FDA-Public Use
  Company Number: ES-SANOFI-AVENTIS-2012SA015314

PATIENT
  Age: 76 Year
  Sex: Male
  Weight: 97 kg

DRUGS (6)
  1. CALCIUM [Concomitant]
  2. PREDNISONE TAB [Suspect]
     Indication: PROSTATE CANCER METASTATIC
     Route: 048
     Dates: start: 20120102, end: 20120306
  3. CABAZITAXEL [Suspect]
     Indication: PROSTATE CANCER METASTATIC
     Route: 042
     Dates: start: 20120102, end: 20120102
  4. CABAZITAXEL [Suspect]
     Route: 042
     Dates: start: 20120214, end: 20120214
  5. FENTANYL [Concomitant]
     Dosage: FORM: PATCH
  6. VITAMIN D [Concomitant]

REACTIONS (1)
  - CARDIAC FAILURE [None]
